FAERS Safety Report 6888091-X (Version None)
Quarter: 2010Q3

REPORT INFORMATION
  Report Type: 
  Country: None (occurrence: None)
  Receive Date: 20100730
  Receipt Date: 20100721
  Transmission Date: 20110219
  Serious: Yes (Life-Threatening, Hospitalization)
  Sender: FDA-Public Use
  Company Number: CL-JNJFOC-20091206429

PATIENT
  Sex: Male
  Weight: 69 kg

DRUGS (10)
  1. GOLIMUMAB [Suspect]
     Indication: RHEUMATOID ARTHRITIS
     Route: 058
  2. GOLIMUMAB [Suspect]
     Route: 058
  3. METHOTREXATE [Suspect]
     Indication: RHEUMATOID ARTHRITIS
     Route: 048
  4. METHOTREXATE [Suspect]
     Route: 048
  5. PLACEBO [Suspect]
     Indication: RHEUMATOID ARTHRITIS
     Route: 058
  6. PREDNISONE [Concomitant]
     Route: 048
  7. DICLOFENAC [Concomitant]
     Route: 048
  8. ISONIAZID [Concomitant]
     Route: 048
  9. METHOTREXATE [Concomitant]
     Route: 048
  10. METHOTREXATE [Concomitant]
     Route: 048

REACTIONS (3)
  - INTESTINAL OBSTRUCTION [None]
  - PERITONITIS [None]
  - SPINAL FRACTURE [None]
